FAERS Safety Report 25555229 (Version 1)
Quarter: 2025Q3

REPORT INFORMATION
  Report Type: Spontaneous
  Country: CN (occurrence: CN)
  Receive Date: 20250715
  Receipt Date: 20250715
  Transmission Date: 20251021
  Serious: Yes (Death, Other)
  Sender: AMGEN
  Company Number: CN-AMGEN-CHNSP2025134370

PATIENT
  Age: 49 Year
  Sex: Male

DRUGS (4)
  1. CINACALCET HYDROCHLORIDE [Suspect]
     Active Substance: CINACALCET HYDROCHLORIDE
     Indication: Calciphylaxis
     Route: 065
  2. SEVELAMER [Concomitant]
     Active Substance: SEVELAMER
     Indication: Calciphylaxis
  3. SODIUM THIOSULFATE [Concomitant]
     Active Substance: SODIUM THIOSULFATE
     Indication: Calciphylaxis
     Dosage: 4 GRAM IN 100ML OF SALINE, QOD
     Route: 040
  4. ROXADUSTAT [Concomitant]
     Active Substance: ROXADUSTAT
     Indication: Calciphylaxis

REACTIONS (5)
  - Respiratory failure [Fatal]
  - Calciphylaxis [Unknown]
  - Gangrene [Unknown]
  - Pulmonary calcification [Unknown]
  - Drug ineffective [Unknown]
